FAERS Safety Report 9787577 (Version 2)
Quarter: 2014Q1

REPORT INFORMATION
  Report Type: Spontaneous
  Country: MX (occurrence: MX)
  Receive Date: 20131230
  Receipt Date: 20140219
  Transmission Date: 20141002
  Serious: Yes (Other)
  Sender: FDA-Public Use
  Company Number: MX-JNJFOC-20131212106

PATIENT
  Sex: Female
  Weight: 61 kg

DRUGS (1)
  1. LISTERINE WHITENING [Suspect]
     Indication: DENTAL CARE
     Route: 002
     Dates: start: 2010

REACTIONS (2)
  - Anosmia [Not Recovered/Not Resolved]
  - Ageusia [Not Recovered/Not Resolved]
